FAERS Safety Report 17440383 (Version 2)
Quarter: 2020Q2

REPORT INFORMATION
  Report Type: Report from Study
  Country: US (occurrence: US)
  Receive Date: 20200220
  Receipt Date: 20200401
  Transmission Date: 20200713
  Serious: Yes (Hospitalization)
  Sender: FDA-Public Use
  Company Number: US-EISAI MEDICAL RESEARCH-EC-2019-066731

PATIENT
  Age: 65 Year
  Sex: Male
  Weight: 68 kg

DRUGS (3)
  1. LENVIMA [Suspect]
     Active Substance: LENVATINIB
     Indication: HEPATIC CANCER
     Route: 048
     Dates: start: 20191205, end: 201912
  2. LENVIMA [Suspect]
     Active Substance: LENVATINIB
     Route: 048
     Dates: start: 202001, end: 20200125
  3. LENVIMA [Suspect]
     Active Substance: LENVATINIB
     Route: 048
     Dates: start: 20191226, end: 202001

REACTIONS (8)
  - Impaired healing [Recovering/Resolving]
  - Pain in extremity [Not Recovered/Not Resolved]
  - Weight decreased [Recovering/Resolving]
  - Pyrexia [Unknown]
  - Fatigue [Unknown]
  - Decreased appetite [Recovering/Resolving]
  - Blood potassium abnormal [Unknown]
  - Wound infection [Unknown]

NARRATIVE: CASE EVENT DATE: 201912
